FAERS Safety Report 10428526 (Version 2)
Quarter: 2014Q3

REPORT INFORMATION
  Report Type: Report from Study
  Country: IN (occurrence: IN)
  Receive Date: 20140903
  Receipt Date: 20140903
  Transmission Date: 20150326
  Serious: Yes (Hospitalization, Other)
  Sender: FDA-Public Use
  Company Number: PHHY2014IN086646

PATIENT
  Age: 33 Year
  Sex: Female

DRUGS (15)
  1. OFLOX [Concomitant]
     Dosage: 200 MG, QD
  2. OMNACORTIL//PREDNISOLONE [Concomitant]
     Dosage: 20 MG, QD
  3. PANTOP D [Concomitant]
     Dosage: UNK UKN, BID
  4. DYTOR [Concomitant]
     Dosage: 40 MG, BID
  5. EPOSIS//EPOETIN ALFA [Concomitant]
     Dosage: 4000 U, EVERY THIRD DAY (REPORTED EOD)
     Route: 058
  6. SIMULECT [Suspect]
     Active Substance: BASILIXIMAB
     Indication: IMMUNOSUPPRESSION
  7. NUFORCE [Concomitant]
     Dosage: 50 MG, QD
  8. ONDACE [Concomitant]
     Dosage: 4 MG, BID
  9. SIMULECT [Suspect]
     Active Substance: BASILIXIMAB
     Indication: RENAL TRANSPLANT
     Dosage: 20 MG,
     Route: 042
     Dates: start: 20140706
  10. CANDID MOUTH [Concomitant]
     Dosage: UNK UKN, TID
  11. IMMUNOSUPPRESSANTS [Concomitant]
     Active Substance: UNSPECIFIED INGREDIENT
     Dosage: UNK UKN, UNK
     Dates: start: 20140706
  12. AMLONG [Concomitant]
     Dosage: 5 MG, AT NIGHT
  13. DIGOXIN. [Concomitant]
     Active Substance: DIGOXIN
     Dosage: 0.5 DF, EVERY THIRD DAY (REPORTED EOD)
  14. LISTERINE                               /CAN/ [Concomitant]
     Dosage: UNK UKN, TID
  15. DROTIN PLUS [Concomitant]
     Indication: PAIN
     Dosage: UNK UKN, UNK

REACTIONS (6)
  - Kidney transplant rejection [Unknown]
  - Renal failure chronic [Unknown]
  - Urine output decreased [Unknown]
  - Hypertension [Unknown]
  - Renal failure [Unknown]
  - Infection [Unknown]

NARRATIVE: CASE EVENT DATE: 20140707
